FAERS Safety Report 8602259-3 (Version None)
Quarter: 2012Q3

REPORT INFORMATION
  Report Type: 
  Country: None (occurrence: None)
  Receive Date: 20120817
  Receipt Date: 20120808
  Transmission Date: 20120928
  Serious: Yes (Other)
  Sender: FDA-Public Use
  Company Number: US-ABBOTT-12P-163-0966673-00

PATIENT
  Sex: Female
  Weight: 92.616 kg

DRUGS (9)
  1. PRILOSEC [Concomitant]
     Indication: GASTRIC DISORDER
  2. ALBUTEROL [Concomitant]
     Indication: ASTHMA
  3. ELAVIL [Concomitant]
     Indication: DEPRESSION
  4. TYLENOL [Concomitant]
     Indication: ANKYLOSING SPONDYLITIS
  5. HUMIRA [Suspect]
     Indication: CROHN'S DISEASE
  6. TRAMADOL HCL [Concomitant]
     Indication: ANKYLOSING SPONDYLITIS
  7. IMODIUM [Concomitant]
     Indication: CROHN'S DISEASE
  8. HUMIRA [Suspect]
     Indication: ANKYLOSING SPONDYLITIS
     Route: 058
     Dates: start: 20050101, end: 20120401
  9. VITAMIN D [Concomitant]
     Indication: VITAMIN SUPPLEMENTATION

REACTIONS (11)
  - URINARY TRACT INFECTION [None]
  - C-REACTIVE PROTEIN INCREASED [None]
  - GASTROINTESTINAL INFECTION [None]
  - VAGINAL HAEMORRHAGE [None]
  - ANAEMIA [None]
  - SINUSITIS [None]
  - PANCREATITIS [None]
  - BLOOD IRON DECREASED [None]
  - BLADDER HYPERTROPHY [None]
  - INFLAMMATION [None]
  - RED BLOOD CELL SEDIMENTATION RATE INCREASED [None]
